FAERS Safety Report 22357326 (Version 2)
Quarter: 2023Q2

REPORT INFORMATION
  Report Type: Spontaneous
  Country: US (occurrence: US)
  Receive Date: 20230524
  Receipt Date: 20230526
  Transmission Date: 20230722
  Serious: Yes (Other)
  Sender: FDA-Public Use
  Company Number: US-JNJFOC-20230533690

PATIENT
  Sex: Male
  Weight: 149.82 kg

DRUGS (4)
  1. RISPERDAL CONSTA [Suspect]
     Active Substance: RISPERIDONE
     Indication: Schizophrenia
     Route: 065
  2. RISPERDAL CONSTA [Suspect]
     Active Substance: RISPERIDONE
     Route: 065
  3. RISPERDAL CONSTA [Suspect]
     Active Substance: RISPERIDONE
  4. RISPERDAL CONSTA [Suspect]
     Active Substance: RISPERIDONE

REACTIONS (9)
  - Limb injury [Not Recovered/Not Resolved]
  - Adverse event [Unknown]
  - Device occlusion [Unknown]
  - Injection site pain [Unknown]
  - Product label issue [Unknown]
  - Anxiety [Unknown]
  - Underdose [Unknown]
  - Delusion [Unknown]
  - Accidental exposure to product [Unknown]
